FAERS Safety Report 6691584-1 (Version None)
Quarter: 2010Q2

REPORT INFORMATION
  Report Type: 
  Country: None (occurrence: None)
  Receive Date: 20100422
  Receipt Date: 20100412
  Transmission Date: 20101027
  Serious: Yes (Death)
  Sender: FDA-Public Use
  Company Number: US-JNJFOC-20100402684

PATIENT
  Sex: Female
  Weight: 60 kg

DRUGS (2)
  1. ULTRAM [Suspect]
     Indication: BACK PAIN
     Dosage: 8 TABLETS TAKEN
     Route: 065
  2. VALIUM [Interacting]
     Indication: BACK PAIN
     Dosage: 2-5MG
     Route: 065

REACTIONS (2)
  - DRUG INTERACTION [None]
  - SUDDEN DEATH [None]
